FAERS Safety Report 4642854-X (Version None)
Quarter: 2005Q2

REPORT INFORMATION
  Report Type: 
  Country: None (occurrence: None)
  Receive Date: 20050421
  Receipt Date: 20050412
  Transmission Date: 20051028
  Serious: Yes (Hospitalization)
  Sender: FDA-Public Use
  Company Number: 2005PK00626

PATIENT
  Age: 64 Year
  Sex: Female
  Weight: 68 kg

DRUGS (2)
  1. ARIMIDEX [Suspect]
     Indication: BREAST CANCER
     Dosage: 1 MG DAILY PO
     Route: 048
     Dates: start: 20020601
  2. TAMOXIFEN CITRATE [Concomitant]

REACTIONS (4)
  - ACCIDENT [None]
  - FEMUR FRACTURE [None]
  - IMPAIRED HEALING [None]
  - PSEUDARTHROSIS [None]
